FAERS Safety Report 11131212 (Version 1)
Quarter: 2015Q2

REPORT INFORMATION
  Report Type: Report from Study
  Country: CA (occurrence: CA)
  Receive Date: 20150522
  Receipt Date: 20150522
  Transmission Date: 20150821
  Serious: Yes (Hospitalization, Other)
  Sender: FDA-Public Use
  Company Number: CA-ACTELION-A-CH2015-117183

PATIENT
  Age: 78 Year
  Sex: Female
  Weight: 78.1 kg

DRUGS (14)
  1. ATENOLOL. [Concomitant]
     Active Substance: ATENOLOL
     Dosage: 50 MG, BID
     Route: 048
     Dates: start: 1995
  2. CALCIUM MAGNESIUM [Concomitant]
     Active Substance: CALCIUM\MAGNESIUM
     Dosage: UNK, QD
     Route: 048
     Dates: start: 201406
  3. GABAPENTIN. [Concomitant]
     Active Substance: GABAPENTIN
     Dosage: UNK MG, QD
     Route: 048
     Dates: start: 2011
  4. WARFARIN [Concomitant]
     Active Substance: WARFARIN
     Dosage: 3.5 MG, QD
     Route: 048
     Dates: start: 20150215
  5. PALAFER [Concomitant]
     Active Substance: FERROUS FUMARATE
     Dosage: 300 MG, QD
     Route: 048
     Dates: start: 20150414
  6. SPIRONOLACTONE. [Concomitant]
     Active Substance: SPIRONOLACTONE
     Dosage: 25 MG, QD
     Route: 048
     Dates: start: 2013
  7. WARFARIN [Concomitant]
     Active Substance: WARFARIN
     Dosage: 4 MG, QD
     Route: 048
     Dates: start: 2007, end: 20150214
  8. ROSUVASTATIN [Concomitant]
     Active Substance: ROSUVASTATIN
     Dosage: 5 MG, QD
     Route: 048
     Dates: start: 201406
  9. MACITENTAN [Suspect]
     Active Substance: MACITENTAN
     Indication: PULMONARY HYPERTENSION
     Dosage: UNK, QD
     Route: 048
     Dates: start: 20150127, end: 20150424
  10. ELAVIL [Concomitant]
     Active Substance: AMITRIPTYLINE HYDROCHLORIDE
     Dosage: 10 MG, QD
     Route: 048
     Dates: start: 2012
  11. ASPIRIN. [Concomitant]
     Active Substance: ASPIRIN
     Dosage: 80 MG, QD
     Route: 048
     Dates: start: 2007
  12. OMEGA 3 6 9 [Concomitant]
     Dosage: UNK, QD
     Route: 048
     Dates: start: 201406
  13. FUROSEMIDE. [Concomitant]
     Active Substance: FUROSEMIDE
     Dosage: 80 MG, QD
     Route: 048
     Dates: start: 1980
  14. GLICLAZIDE [Concomitant]
     Active Substance: GLICLAZIDE
     Dosage: 30 MG, QD
     Route: 048
     Dates: start: 2009

REACTIONS (6)
  - Haemoglobin decreased [Recovered/Resolved]
  - Red blood cell count decreased [Recovered/Resolved]
  - Haematocrit decreased [Recovered/Resolved]
  - International normalised ratio increased [Recovered/Resolved]
  - Generalised oedema [Unknown]
  - Mouth haemorrhage [Recovered/Resolved]

NARRATIVE: CASE EVENT DATE: 201504
